FAERS Safety Report 4651268-8 (Version None)
Quarter: 2005Q2

REPORT INFORMATION
  Report Type: 
  Country: None (occurrence: None)
  Receive Date: 20050331
  Receipt Date: 20050131
  Transmission Date: 20051028
  Serious: No
  Sender: FDA-Public Use
  Company Number: 05P-163-0288814-00

PATIENT
  Age: 54 Year
  Sex: Female
  Weight: 62.1428 kg

DRUGS (10)
  1. HUMIRA [Suspect]
     Indication: ARTHRITIS
     Dosage: 40 MG, 1 IN 2 WK, SUBCUTANEOUS
     Route: 058
     Dates: start: 20040501
  2. ESTROGENS CONJUGATED [Concomitant]
  3. MEDROXYPROGESTERONE ACETATE [Concomitant]
  4. LEVOTHYROXINE SODIUM [Concomitant]
  5. TELMISARTAN [Concomitant]
  6. HYDROCHLOROTHIAZIDE [Concomitant]
  7. POTASSIUM CHLORIDE [Concomitant]
  8. VICODIN [Concomitant]
  9. CALCIUM GLUCONATE [Concomitant]
  10. ERGOCALCIFEROL [Concomitant]

REACTIONS (1)
  - ARTHRITIS [None]
